FAERS Safety Report 7163599-0 (Version None)
Quarter: 2010Q4

REPORT INFORMATION
  Report Type: 
  Country: None (occurrence: None)
  Receive Date: 20101215
  Receipt Date: 20100517
  Transmission Date: 20110411
  Serious: Yes (Hospitalization)
  Sender: FDA-Public Use
  Company Number: FR-PFIZER INC-2010061249

PATIENT
  Age: 92 Year
  Sex: Female

DRUGS (9)
  1. LYRICA [Suspect]
     Indication: FACIAL NEURALGIA
     Dosage: 75 MG, 2X/DAY
     Route: 048
     Dates: end: 20100429
  2. RAMIPRIL [Suspect]
     Dosage: 3.75 MG, 1X/DAY
     Route: 048
  3. PLAVIX [Concomitant]
     Dosage: 75 MG, 1X/DAY
     Route: 048
  4. FUROSEMIDE [Concomitant]
     Dosage: 20 MG, 1X/DAY
     Route: 048
     Dates: end: 20100429
  5. KREDEX [Concomitant]
     Dosage: 6.25 MG, 2X/DAY
     Route: 048
     Dates: end: 20100429
  6. BUDESONIDE [Concomitant]
     Indication: ASTHMA
     Dosage: 400 UG, 2X/DAY
     Route: 055
  7. FORMOTEROL [Concomitant]
     Indication: ASTHMA
     Dosage: 1 DF, 2X/DAY
     Route: 055
     Dates: end: 20100429
  8. SALBUTAMOL [Concomitant]
     Indication: ASTHMA
     Dosage: 100 A?G/DOSE
     Route: 055
     Dates: end: 20100429
  9. TANAKAN [Concomitant]
     Dosage: 40 MG, 3X/DAY
     Route: 048
     Dates: end: 20100429

REACTIONS (2)
  - DECREASED APPETITE [None]
  - VOMITING [None]
